FAERS Safety Report 4731073-4 (Version None)
Quarter: 2005Q3

REPORT INFORMATION
  Report Type: 
  Country: None (occurrence: None)
  Receive Date: 20050726
  Receipt Date: 20050315
  Transmission Date: 20060218
  Serious: Yes (Death, Life-Threatening)
  Sender: FDA-Public Use
  Company Number: 05GER0014

PATIENT
  Age: 68 Year
  Sex: Female

DRUGS (3)
  1. AGGRASTAT [Suspect]
     Indication: CEREBRAL ARTERY OCCLUSION
     Dosage: 3ML BOLUS; 2.8ML/HR
     Route: 040
     Dates: start: 20040405
  2. ALTEPLASE (ALTEPLASE) (175 MILLIGRAM) [Suspect]
     Indication: CEREBRAL INFARCTION
     Dosage: 175MG QD
     Dates: start: 20040405, end: 20040405
  3. HEPARIN [Suspect]
     Indication: CEREBRAL ARTERY OCCLUSION
     Dosage: 250IU/HR
     Dates: start: 20040405, end: 20040405

REACTIONS (2)
  - CEREBRAL HAEMORRHAGE [None]
  - HAEMATEMESIS [None]
